FAERS Safety Report 5493955-8 (Version None)
Quarter: 2007Q4

REPORT INFORMATION
  Report Type: 
  Country: None (occurrence: None)
  Receive Date: 20071023
  Receipt Date: 20071011
  Transmission Date: 20080405
  Serious: Yes (Other)
  Sender: FDA-Public Use
  Company Number: US-PFIZER INC-2007086216

PATIENT
  Sex: Female

DRUGS (1)
  1. CHANTIX [Suspect]
     Dates: start: 20070401, end: 20071001

REACTIONS (4)
  - CONSTIPATION [None]
  - DYSURIA [None]
  - OEDEMA [None]
  - WEIGHT INCREASED [None]
